FAERS Safety Report 25721658 (Version 1)
Quarter: 2025Q3

REPORT INFORMATION
  Report Type: Spontaneous
  Country: CA (occurrence: CA)
  Receive Date: 20250825
  Receipt Date: 20250825
  Transmission Date: 20251021
  Serious: Yes (Other)
  Sender: MYLAN
  Company Number: CA-MYLANLABS-2025M1071022

PATIENT
  Age: 58 Year
  Sex: Male

DRUGS (12)
  1. VALACYCLOVIR HYDROCHLORIDE [Suspect]
     Active Substance: VALACYCLOVIR HYDROCHLORIDE
     Indication: Herpes zoster
     Dosage: 500 MILLIGRAM, QD (1 EVERY 1 DAYS)
  2. ADMELOG [Concomitant]
     Active Substance: INSULIN LISPRO
  3. ASPIRIN [Concomitant]
     Active Substance: ASPIRIN
  4. CALCITRIOL [Concomitant]
     Active Substance: CALCITRIOL
  5. CALCIUM CARBONATE [Concomitant]
     Active Substance: CALCIUM CARBONATE
  6. DOCUSATE [Concomitant]
     Active Substance: DOCUSATE
  7. GABAPENTIN [Concomitant]
     Active Substance: GABAPENTIN
  8. HUMULIN N [Concomitant]
     Active Substance: INSULIN HUMAN
  9. PANTOPRAZOLE [Concomitant]
     Active Substance: PANTOPRAZOLE
  10. PREDNISONE [Concomitant]
     Active Substance: PREDNISONE
  11. ASCORBIC ACID\BIOTIN\CALCIUM PANTOTHENATE\CYANOCOBALAMIN\FOLIC ACID\NI [Concomitant]
     Active Substance: ASCORBIC ACID\BIOTIN\CALCIUM PANTOTHENATE\CYANOCOBALAMIN\FOLIC ACID\NIACINAMIDE\PYRIDOXINE HYDROCHLO
  12. SEVELAMER [Concomitant]
     Active Substance: SEVELAMER

REACTIONS (6)
  - Speech disorder [Recovering/Resolving]
  - Abnormal dreams [Recovering/Resolving]
  - Balance disorder [Recovering/Resolving]
  - Gait disturbance [Recovering/Resolving]
  - Hypoaesthesia [Recovering/Resolving]
  - Peripheral coldness [Recovering/Resolving]
